FAERS Safety Report 10915694 (Version 1)
Quarter: 2015Q1

REPORT INFORMATION
  Report Type: Spontaneous
  Country: US (occurrence: None)
  Receive Date: 20150311
  Receipt Date: 20150311
  Transmission Date: 20150721
  Serious: Yes (Other)
  Sender: FDA-Public Use
  Company Number: None

PATIENT
  Sex: Male
  Weight: 72.58 kg

DRUGS (11)
  1. SYNTHROID [Concomitant]
     Active Substance: LEVOTHYROXINE SODIUM
  2. ALIGN [Concomitant]
     Active Substance: BIFIDOBACTERIUM LONGUM SUBSP. INFANTIS
  3. LOVASA [Concomitant]
  4. HYDREA [Concomitant]
     Active Substance: HYDROXYUREA
  5. ASPIRIN. [Concomitant]
     Active Substance: ASPIRIN
  6. JAKAFI [Suspect]
     Active Substance: RUXOLITINIB
     Indication: ANAEMIA
     Dosage: 2
     Route: 048
     Dates: start: 2012, end: 201307
  7. JAKAFI [Suspect]
     Active Substance: RUXOLITINIB
     Indication: POLYCYTHAEMIA VERA
     Dosage: 2
     Route: 048
     Dates: start: 2012, end: 201307
  8. JAKAFI [Suspect]
     Active Substance: RUXOLITINIB
     Indication: MYELOFIBROSIS
     Dosage: 2
     Route: 048
     Dates: start: 2012, end: 201307
  9. METOPOLOL [Concomitant]
  10. EFEXXOR [Concomitant]
  11. ALAPURNOL [Concomitant]

REACTIONS (3)
  - Biopsy skin abnormal [None]
  - Drug ineffective [None]
  - Skin disorder [None]

NARRATIVE: CASE EVENT DATE: 2013
